FAERS Safety Report 7676425-8 (Version None)
Quarter: 2011Q3

REPORT INFORMATION
  Report Type: 
  Country: None (occurrence: None)
  Receive Date: 20110805
  Receipt Date: 20110727
  Transmission Date: 20111222
  Serious: Yes (Other)
  Sender: FDA-Public Use
  Company Number: UCM201107-000044

PATIENT
  Age: 22 Year
  Sex: Female

DRUGS (1)
  1. CETIRIZINE [Suspect]
     Indication: ALLERGIC SINUSITIS
     Dosage: 10 MG/DAY
     Dates: start: 20100501

REACTIONS (2)
  - MYASTHENIA GRAVIS [None]
  - CONDITION AGGRAVATED [None]
